FAERS Safety Report 12294384 (Version 1)
Quarter: 2016Q2

REPORT INFORMATION
  Report Type: Spontaneous
  Country: US (occurrence: None)
  Receive Date: 20160421
  Receipt Date: 20160421
  Transmission Date: 20160815
  Serious: No
  Sender: FDA-Public Use
  Company Number: None

PATIENT
  Age: 23 Year
  Sex: Female

DRUGS (1)
  1. REMICADE [Suspect]
     Active Substance: INFLIXIMAB
     Indication: CROHN^S DISEASE
     Dosage: 350MG EVERY 6 WEEKS INFUSION
     Dates: start: 20160118

REACTIONS (3)
  - Dehydration [None]
  - Loss of consciousness [None]
  - Anxiety [None]

NARRATIVE: CASE EVENT DATE: 20160417
